FAERS Safety Report 11569149 (Version 1)
Quarter: 2015Q3

REPORT INFORMATION
  Report Type: Spontaneous
  Country: FR (occurrence: FR)
  Receive Date: 20150929
  Receipt Date: 20150929
  Transmission Date: 20151125
  Serious: Yes (Hospitalization)
  Sender: FDA-Public Use
  Company Number: FR-PFIZER INC-2015316576

PATIENT
  Age: 37 Year
  Sex: Female

DRUGS (2)
  1. SALAZOPYRINE [Suspect]
     Active Substance: SULFASALAZINE
     Indication: RHEUMATOID ARTHRITIS
     Dosage: 1500 MG, DAILY (500 MG IN MORNING AND 1000 MG IN EVENING)
     Route: 048
     Dates: start: 20150809, end: 20150824
  2. MENINGITEC [Suspect]
     Active Substance: NEISSERIA MENINGITIDIS GROUP C CAPSULAR POLYSACCHARIDE ANTIGEN
     Dosage: UNK
     Route: 030
     Dates: start: 20150810, end: 20150810

REACTIONS (1)
  - Histiocytosis haematophagic [Recovered/Resolved]

NARRATIVE: CASE EVENT DATE: 20150819
